FAERS Safety Report 18326076 (Version 1)
Quarter: 2020Q3

REPORT INFORMATION
  Report Type: Spontaneous
  Country: IR (occurrence: IR)
  Receive Date: 20200929
  Receipt Date: 20200929
  Transmission Date: 20201103
  Serious: No
  Sender: FDA-Public Use
  Company Number: IR-LUPIN PHARMACEUTICALS INC.-2020-00721

PATIENT
  Age: 26 Year
  Sex: Male

DRUGS (2)
  1. CEFIXIME. [Concomitant]
     Active Substance: CEFIXIME
     Indication: INFLUENZA LIKE ILLNESS
     Dosage: 400 MILLIGRAM, QD
     Route: 065
  2. AZITHROMYCIN ANHYDROUS. [Suspect]
     Active Substance: AZITHROMYCIN ANHYDROUS
     Indication: INFLUENZA LIKE ILLNESS
     Dosage: 500 MILLIGRAM, QD
     Route: 065

REACTIONS (1)
  - Aphthous ulcer [Recovered/Resolved]
